FAERS Safety Report 19363357 (Version 1)
Quarter: 2021Q2

REPORT INFORMATION
  Report Type: Other
  Country: IL (occurrence: IL)
  Receive Date: 20210603
  Receipt Date: 20210603
  Transmission Date: 20210717
  Serious: Yes (Other)
  Sender: FDA-Public Use
  Company Number: IL-ROCHE-2837285

PATIENT
  Age: 28 Year
  Sex: Female

DRUGS (1)
  1. OCREVUS [Suspect]
     Active Substance: OCRELIZUMAB
     Indication: RELAPSING-REMITTING MULTIPLE SCLEROSIS
     Dosage: LAST DATE WITH OCRELIZUMAB TREATMENT: 01/JUL/2020.
     Route: 042
     Dates: start: 20181206

REACTIONS (2)
  - Maternal exposure before pregnancy [Unknown]
  - Abortion [Unknown]

NARRATIVE: CASE EVENT DATE: 20210414
